FAERS Safety Report 7166198-X (Version None)
Quarter: 2010Q4

REPORT INFORMATION
  Report Type: 
  Country: None (occurrence: None)
  Receive Date: 20101202
  Receipt Date: 20101122
  Transmission Date: 20110411
  Serious: Yes (Other)
  Sender: FDA-Public Use
  Company Number: CVBU2002LB00863

PATIENT
  Age: 66 Year
  Sex: Female

DRUGS (2)
  1. VISUDYNE [Suspect]
     Indication: RETINAL NEOVASCULARISATION
  2. FLUORESCEINE [Suspect]
     Indication: ANGIOGRAM

REACTIONS (2)
  - MACULAR HOLE [None]
  - PYREXIA [None]
